FAERS Safety Report 5141414-4 (Version None)
Quarter: 2006Q4

REPORT INFORMATION
  Report Type: 
  Country: None (occurrence: None)
  Receive Date: 20061101
  Receipt Date: 20061025
  Transmission Date: 20070319
  Serious: Yes (Congenital Anomaly, Other)
  Sender: FDA-Public Use
  Company Number: GB-GLAXOSMITHKLINE-B0444738A

PATIENT

DRUGS (6)
  1. ABACAVIR [Suspect]
     Dates: end: 20051225
  2. COMBIVIR [Suspect]
     Dates: start: 20060411
  3. LAMIVUDINE [Suspect]
     Dates: end: 20051225
  4. RITONAVIR [Suspect]
     Dosage: 200MG PER DAY
     Dates: start: 20060411
  5. SAQUINAVIR [Suspect]
     Dosage: 2000MG PER DAY
     Dates: start: 20060411
  6. VIRAMUNE [Suspect]
     Dosage: 400MG PER DAY
     Dates: end: 20051225

REACTIONS (1)
  - ALPHA 1 FOETOPROTEIN ABNORMAL [None]
